FAERS Safety Report 10024284 (Version 2)
Quarter: 2014Q2

REPORT INFORMATION
  Report Type: Spontaneous
  Country: VE (occurrence: VE)
  Receive Date: 20140320
  Receipt Date: 20140409
  Transmission Date: 20141212
  Serious: Yes (Death, Other)
  Sender: FDA-Public Use
  Company Number: VE-PFIZER INC-2014080720

PATIENT
  Age: 58 Year
  Sex: Male

DRUGS (2)
  1. LIPITOR [Suspect]
     Indication: HYPERCHOLESTEROLAEMIA
     Dosage: 80 MG, 1X/DAY
     Route: 048
     Dates: start: 201104, end: 201208
  2. COUMADINE [Concomitant]
     Indication: ANTICOAGULANT THERAPY
     Dosage: 2.5 MG, 1X/DAY
     Route: 048
     Dates: start: 201104

REACTIONS (3)
  - Cerebrovascular accident [Fatal]
  - Arteriosclerosis [Recovered/Resolved]
  - Myocardial infarction [Recovered/Resolved]
